FAERS Safety Report 19221932 (Version 1)
Quarter: 2021Q2

REPORT INFORMATION
  Report Type: Spontaneous
  Country: US (occurrence: US)
  Receive Date: 20210505
  Receipt Date: 20210505
  Transmission Date: 20210717
  Serious: No
  Sender: FDA-Public Use
  Company Number: None

PATIENT
  Age: 51 Year
  Sex: Female
  Weight: 95.2 kg

DRUGS (11)
  1. ALLEGRA ALLERGY [Concomitant]
     Active Substance: FEXOFENADINE HYDROCHLORIDE
  2. ADVIL COLD/SINUS [Concomitant]
  3. LOSARTAN POTASSIUM. [Concomitant]
     Active Substance: LOSARTAN POTASSIUM
  4. BENADRYL ALLERGY [Concomitant]
     Active Substance: DIPHENHYDRAMINE HYDROCHLORIDE
  5. DEXAMETHASONE. [Concomitant]
     Active Substance: DEXAMETHASONE
  6. FIBER CHOICE PREBIOTIC FIBER [Concomitant]
  7. PEPCID [Concomitant]
     Active Substance: FAMOTIDINE
  8. LETROZOLE. [Concomitant]
     Active Substance: LETROZOLE
  9. VENLAFAXINE HCL [Concomitant]
     Active Substance: VENLAFAXINE HYDROCHLORIDE
  10. MELATONIN [Concomitant]
     Active Substance: MELATONIN
  11. IBRANCE [Suspect]
     Active Substance: PALBOCICLIB
     Indication: BREAST CANCER
     Route: 048
     Dates: start: 20210405

REACTIONS (2)
  - Stomatitis [None]
  - Alopecia [None]

NARRATIVE: CASE EVENT DATE: 20210405
